FAERS Safety Report 8871488 (Version 1)
Quarter: 2012Q4

REPORT INFORMATION
  Report Type: 
  Country: DE (occurrence: DE)
  Receive Date: 20121023
  Receipt Date: 20121023
  Transmission Date: 20130627
  Serious: Yes (Other)
  Sender: FDA-Public Use
  Company Number: CHPA2012DE022095

PATIENT
  Sex: Female

DRUGS (1)
  1. OTRIVEN (XYLOMETAZOLINE HYDROCHLORIDE) [Suspect]
     Indication: SEASONAL ALLERGY
     Dosage: Unk, Unk
     Route: 045

REACTIONS (1)
  - Drug dependence [Unknown]
